FAERS Safety Report 21668457 (Version 2)
Quarter: 2022Q4

REPORT INFORMATION
  Report Type: Spontaneous
  Country: US (occurrence: US)
  Receive Date: 20221201
  Receipt Date: 20221230
  Transmission Date: 20230113
  Serious: No
  Sender: FDA-Public Use
  Company Number: US-PFIZER INC-202201339878

PATIENT
  Age: 75 Year
  Sex: Male
  Weight: 73.48 kg

DRUGS (3)
  1. PAXLOVID [Suspect]
     Active Substance: NIRMATRELVIR\RITONAVIR
     Indication: COVID-19 treatment
     Dosage: 3 DF,TAKE 2 PINK TABLETS AND ONE WHITE TABLETS ALL TOGETHER AT THE SAME TIME 2X/DAY
     Route: 048
     Dates: start: 20221128
  2. PAXLOVID [Suspect]
     Active Substance: NIRMATRELVIR\RITONAVIR
     Dosage: UNK
  3. IBUPROFEN [Concomitant]
     Active Substance: IBUPROFEN
     Dosage: UNK
     Dates: start: 20221129

REACTIONS (4)
  - Incorrect dose administered [Recovered/Resolved]
  - Dysgeusia [Unknown]
  - Cough [Not Recovered/Not Resolved]
  - Fatigue [Unknown]

NARRATIVE: CASE EVENT DATE: 20221128
